FAERS Safety Report 5564597-0 (Version None)
Quarter: 2007Q4

REPORT INFORMATION
  Report Type: 
  Country: None (occurrence: None)
  Receive Date: 20071218
  Receipt Date: 20071210
  Transmission Date: 20080405
  Serious: Yes (Hospitalization)
  Sender: FDA-Public Use
  Company Number: BE-AVENTIS-200721390GDDC

PATIENT
  Age: 55 Year
  Sex: Female

DRUGS (5)
  1. TAXOTERE [Suspect]
     Dosage: DOSE: UNK
     Route: 042
     Dates: start: 20071101, end: 20071201
  2. MEDROL [Concomitant]
     Indication: PREMEDICATION
     Dosage: DOSE: UNK
  3. FLUOROURACIL [Concomitant]
  4. EPIRUBICIN [Concomitant]
  5. CYCLOPHOSPHAMIDE [Concomitant]

REACTIONS (9)
  - CAPILLARY LEAK SYNDROME [None]
  - CARDIAC FAILURE [None]
  - CARDIOMEGALY [None]
  - CHOLESTASIS [None]
  - DERMATITIS ALLERGIC [None]
  - DYSPNOEA [None]
  - GILBERT'S SYNDROME [None]
  - NAIL DISORDER [None]
  - PLEURAL EFFUSION [None]
